FAERS Safety Report 21777632 (Version 1)
Quarter: 2022Q4

REPORT INFORMATION
  Report Type: Spontaneous
  Country: US (occurrence: US)
  Receive Date: 20221226
  Receipt Date: 20221226
  Transmission Date: 20230112
  Serious: No
  Sender: FDA-Public Use
  Company Number: US-MIGRATION_PFIZER-2022BHV002926

PATIENT
  Age: 64 Year
  Sex: Female
  Weight: 59.020 kg

DRUGS (4)
  1. NURTEC ODT [Suspect]
     Active Substance: RIMEGEPANT SULFATE
     Indication: Migraine
     Dosage: I AM TAKING IT EVERY 48 HOURS, AND I ALSO TAKE IT WHEN I GET A HEADACHE AS LONG AS I AM 24 HOURS POS
     Route: 065
     Dates: start: 20220819
  2. NURTEC ODT [Suspect]
     Active Substance: RIMEGEPANT SULFATE
     Indication: Migraine prophylaxis
     Dosage: I AM TAKING IT EVERY 48 HOURS, AND I ALSO TAKE IT WHEN I GET A HEADACHE AS LONG AS I AM 24 HOURS POS
     Route: 065
     Dates: start: 20220819
  3. EMGALITY [Suspect]
     Active Substance: GALCANEZUMAB-GNLM
     Indication: Migraine
     Route: 065
  4. BOTOX [Suspect]
     Active Substance: ONABOTULINUMTOXINA
     Indication: Migraine
     Route: 065

REACTIONS (3)
  - Therapeutic product effect incomplete [Not Recovered/Not Resolved]
  - Feeling abnormal [Not Recovered/Not Resolved]
  - Nausea [Recovered/Resolved]
